FAERS Safety Report 10141704 (Version 1)
Quarter: 2014Q2

REPORT INFORMATION
  Report Type: Spontaneous
  Country: GB (occurrence: GB)
  Receive Date: 20140429
  Receipt Date: 20140429
  Transmission Date: 20141212
  Serious: Yes (Other)
  Sender: FDA-Public Use
  Company Number: GB-B.I. PHARMACEUTICALS,INC./RIDGEFIELD-2014-BI-18165UK

PATIENT
  Age: 77 Year
  Sex: Male
  Weight: 101.9 kg

DRUGS (28)
  1. TRAJENTA [Suspect]
     Indication: PRODUCT USED FOR UNKNOWN INDICATION
     Route: 065
     Dates: start: 20140325
  2. ALLOPURINOL [Concomitant]
     Route: 065
     Dates: start: 20131119, end: 20140409
  3. ASPIRIN [Concomitant]
     Route: 065
     Dates: start: 20101112
  4. ATORVASTATIN [Concomitant]
     Route: 065
     Dates: start: 20131223, end: 20140407
  5. BETAMETHASONE SODIUM PHOSPHATE [Concomitant]
     Route: 065
     Dates: start: 20140108, end: 20140408
  6. BUMETANIDE [Concomitant]
     Route: 065
     Dates: start: 20101112
  7. CARBIMAZOLE [Concomitant]
     Route: 065
     Dates: start: 20101112
  8. CARVEDILOL [Concomitant]
     Route: 065
     Dates: start: 20101112
  9. CO-CODAMOL [Concomitant]
     Route: 065
     Dates: start: 20140211, end: 20140322
  10. DUTASTERIDE [Concomitant]
     Route: 065
     Dates: start: 20101112
  11. FUROSEMIDE [Concomitant]
     Route: 065
     Dates: start: 20131219, end: 20140407
  12. GLICLAZIDE [Concomitant]
     Route: 065
     Dates: start: 20101112, end: 20140407
  13. GLYCERYL TRINITRATE [Concomitant]
     Route: 065
     Dates: start: 20101112
  14. HYDROCORTISONE [Concomitant]
     Route: 065
     Dates: start: 20131219
  15. HYDROXOCOBALAMIN [Concomitant]
     Route: 065
     Dates: start: 20140109, end: 20140310
  16. ISOSORBIDE MONONITRATE [Concomitant]
     Route: 065
     Dates: start: 20101112
  17. METFORMIN [Concomitant]
     Route: 065
     Dates: start: 20101112, end: 20140409
  18. NITROLINGUAL [Concomitant]
     Route: 065
     Dates: start: 20130726
  19. OMEPRAZOLE [Concomitant]
     Route: 065
     Dates: start: 20131128
  20. PARACETAMOL [Concomitant]
     Route: 065
     Dates: start: 20101112
  21. RAMIPRIL [Concomitant]
     Route: 065
     Dates: start: 20101112, end: 20140312
  22. SALBUTAMOL [Concomitant]
     Route: 065
     Dates: start: 20101112
  23. SIMVASTATIN [Concomitant]
     Route: 065
     Dates: start: 20101112
  24. SOTALOL [Concomitant]
     Route: 065
     Dates: start: 20131219, end: 20140407
  25. SPIRONOLACTONE [Concomitant]
     Route: 065
     Dates: start: 20131120, end: 20140115
  26. SYMBICORT [Concomitant]
     Route: 065
     Dates: start: 20101112, end: 20140407
  27. TIOTROPIUM [Concomitant]
     Route: 065
     Dates: start: 20101112, end: 20140407
  28. VENTOLIN [Concomitant]
     Route: 065
     Dates: start: 20131218, end: 20140409

REACTIONS (3)
  - Decreased appetite [Recovered/Resolved]
  - Nausea [Recovered/Resolved]
  - Vomiting [Recovered/Resolved]
